FAERS Safety Report 9246662 (Version 5)
Quarter: 2014Q1

REPORT INFORMATION
  Report Type: Spontaneous
  Country: US (occurrence: US)
  Receive Date: 20130422
  Receipt Date: 20140321
  Transmission Date: 20141002
  Serious: No
  Sender: FDA-Public Use
  Company Number: US-009507513-1304USA009348

PATIENT
  Sex: Female

DRUGS (6)
  1. PEGINTRON [Suspect]
     Indication: HEPATITIS C
     Dosage: VIAL 120 MICROGRAM, QW
     Route: 058
     Dates: start: 20130327, end: 20130521
  2. PEGINTRON [Suspect]
     Indication: HEPATITIS C
     Dosage: Q7DAYS REDIPEN
     Route: 058
     Dates: start: 20130521
  3. RIBASPHERE [Suspect]
     Indication: HEPATITIS C
     Dosage: UNK, BID
     Route: 048
     Dates: start: 20130327
  4. TELAPREVIR [Suspect]
     Indication: HEPATITIS C
     Dosage: UNK
     Dates: start: 20130327, end: 20130630
  5. OMEPRAZOLE [Concomitant]
  6. CELEXA [Concomitant]

REACTIONS (9)
  - Haemorrhoids [Not Recovered/Not Resolved]
  - Nervousness [Unknown]
  - Dry skin [Not Recovered/Not Resolved]
  - Malaise [Unknown]
  - Fatigue [Unknown]
  - Depression [Unknown]
  - Fatigue [Not Recovered/Not Resolved]
  - Depression [Not Recovered/Not Resolved]
  - Depression [Unknown]
